FAERS Safety Report 8450256-3 (Version None)
Quarter: 2012Q2

REPORT INFORMATION
  Report Type: 
  Country: None (occurrence: None)
  Receive Date: 20120613
  Receipt Date: 20120601
  Transmission Date: 20120825
  Serious: Yes (Life-Threatening)
  Sender: FDA-Public Use
  Company Number: AUR-APU-2012-01842

PATIENT
  Sex: Female

DRUGS (1)
  1. SERTRALINE HYDROCHLORIDE [Suspect]
     Indication: PRODUCT USED FOR UNKNOWN INDICATION

REACTIONS (23)
  - COLD SWEAT [None]
  - YELLOW SKIN [None]
  - NAUSEA [None]
  - DYSGEUSIA [None]
  - NIGHTMARE [None]
  - CHEST PAIN [None]
  - RHINORRHOEA [None]
  - HEART RATE INCREASED [None]
  - VAGINAL DISORDER [None]
  - UNEVALUABLE EVENT [None]
  - DECREASED APPETITE [None]
  - DYSPNOEA [None]
  - DEPRESSION [None]
  - ANXIETY [None]
  - MALAISE [None]
  - FLATULENCE [None]
  - HAEMORRHOIDS [None]
  - BACK PAIN [None]
  - CONSTIPATION [None]
  - ABDOMINAL DISCOMFORT [None]
  - WEIGHT DECREASED [None]
  - HOT FLUSH [None]
  - PALPITATIONS [None]
